FAERS Safety Report 6410335-9 (Version None)
Quarter: 2009Q4

REPORT INFORMATION
  Report Type: 
  Country: None (occurrence: None)
  Receive Date: 20091022
  Receipt Date: 20091016
  Transmission Date: 20100525
  Serious: Yes (Hospitalization, Other)
  Sender: FDA-Public Use
  Company Number: US-ASTRAZENECA-2009SE20802

PATIENT
  Age: 57 Year
  Sex: Male

DRUGS (12)
  1. SYMBICORT [Suspect]
     Indication: ASTHMA
     Dosage: 160/4.5 UG 2 PUFFS TWO TIMES A DAY
     Route: 055
     Dates: start: 20090701, end: 20090901
  2. SYMBICORT [Suspect]
     Dosage: 160/4.5 UG 1 PUFF A DAY
     Route: 055
     Dates: start: 20091013
  3. CRESTOR [Suspect]
     Route: 048
     Dates: start: 20090922
  4. PROZAC [Concomitant]
  5. ASPIRIN [Concomitant]
  6. XANAX [Concomitant]
  7. OXYCODONE [Concomitant]
  8. PEPCID [Concomitant]
  9. LISINOPRIL [Concomitant]
  10. LISINOPRIL [Concomitant]
  11. PROAIR HFA [Concomitant]
  12. ATROVENT [Concomitant]

REACTIONS (6)
  - CARDIAC DISORDER [None]
  - COUGH [None]
  - FLUSHING [None]
  - MUSCLE SPASMS [None]
  - PYREXIA [None]
  - TINNITUS [None]
